FAERS Safety Report 4318651-1 (Version None)
Quarter: 2004Q1

REPORT INFORMATION
  Report Type: 
  Country: None (occurrence: None)
  Receive Date: 20040315
  Receipt Date: 20040315
  Transmission Date: 20041129
  Serious: Yes (Other)
  Sender: FDA-Public Use
  Company Number: None

PATIENT
  Age: 43 Year
  Sex: Male

DRUGS (1)
  1. PPD (TB) [Suspect]
     Dosage: RT FOREARM
     Dates: start: 20040224

REACTIONS (2)
  - COUGH [None]
  - NIGHT SWEATS [None]
